FAERS Safety Report 8097871-7 (Version None)
Quarter: 2012Q1

REPORT INFORMATION
  Report Type: 
  Country: None (occurrence: None)
  Receive Date: 20120128
  Receipt Date: 20110815
  Transmission Date: 20120608
  Serious: No
  Sender: FDA-Public Use
  Company Number: US-ABBOTT-11P-163-0846674-00

PATIENT
  Sex: Male
  Weight: 118.04 kg

DRUGS (6)
  1. NEXIUM [Concomitant]
     Indication: PRODUCT USED FOR UNKNOWN INDICATION
  2. BUSPAR [Concomitant]
     Indication: PRODUCT USED FOR UNKNOWN INDICATION
  3. ATENOLOL [Concomitant]
     Indication: HYPERTENSION
  4. HUMIRA [Suspect]
     Indication: CROHN'S DISEASE
     Dates: start: 20110501
  5. PENTASA [Concomitant]
     Indication: CROHN'S DISEASE
  6. HYDROCODONE BITARTRATE [Concomitant]
     Indication: PAIN

REACTIONS (1)
  - INJECTION SITE HAEMORRHAGE [None]
